FAERS Safety Report 9436056 (Version 1)
Quarter: 2013Q3

REPORT INFORMATION
  Report Type: Spontaneous
  Country: US (occurrence: US)
  Receive Date: 20130801
  Receipt Date: 20130801
  Transmission Date: 20140515
  Serious: No
  Sender: FDA-Public Use
  Company Number: US-009507513-1307USA015070

PATIENT
  Age: 33 Year
  Sex: Male

DRUGS (2)
  1. PROPECIA [Suspect]
     Indication: ALOPECIA
     Dosage: 1 MG, ONCE DAILY
     Route: 048
     Dates: start: 200207, end: 20130704
  2. Z-PAK [Concomitant]

REACTIONS (1)
  - Alopecia [Not Recovered/Not Resolved]
